FAERS Safety Report 5851063-8 (Version None)
Quarter: 2008Q3

REPORT INFORMATION
  Report Type: 
  Country: None (occurrence: None)
  Receive Date: 20080820
  Receipt Date: 20080813
  Transmission Date: 20090109
  Serious: Yes (Death)
  Sender: FDA-Public Use
  Company Number: DE-WATSON-2008-04892

PATIENT
  Age: 66 Year
  Sex: Male

DRUGS (3)
  1. FLUOROURACIL [Suspect]
     Indication: COLORECTAL CANCER
     Dosage: FOLFOX PROTOCOL
     Route: 065
     Dates: start: 20070101, end: 20070101
  2. OXALIPLATIN [Suspect]
     Indication: COLORECTAL CANCER
     Dosage: FOLFOX PROTOCOL
     Route: 065
  3. FOLINIC ACID [Concomitant]
     Indication: COLORECTAL CANCER
     Dosage: FOLFOX PROTOCOL
     Route: 065
     Dates: start: 20070101, end: 20070101

REACTIONS (1)
  - PULMONARY FIBROSIS [None]
